FAERS Safety Report 14236475 (Version 3)
Quarter: 2018Q3

REPORT INFORMATION
  Report Type: Spontaneous
  Country: US (occurrence: US)
  Receive Date: 20171129
  Receipt Date: 20180717
  Transmission Date: 20181010
  Serious: No
  Sender: FDA-Public Use
  Company Number: US-PFIZER INC-2017510871

PATIENT
  Age: 73 Year
  Sex: Male
  Weight: 86 kg

DRUGS (11)
  1. FLONASE [Concomitant]
     Active Substance: FLUTICASONE PROPIONATE
     Dosage: 2 DF, 1X/DAY (50 MCG/INH SPRAY. 2 SPRAYS IN EACH NOSTRIL ONCE A DAY)
     Route: 045
     Dates: start: 20150702
  2. VITAMIN C [Concomitant]
     Active Substance: ASCORBIC ACID
     Dosage: 500 MG, 1X/DAY
     Route: 048
     Dates: start: 20150702
  3. REVATIO [Suspect]
     Active Substance: SILDENAFIL CITRATE
     Indication: PULMONARY HYPERTENSION
     Dosage: 20 MG, 3X/DAY
     Route: 048
     Dates: start: 20101001
  4. ACIPHEX [Concomitant]
     Active Substance: RABEPRAZOLE SODIUM
     Dosage: 20 MG, 2X/DAY
     Route: 048
     Dates: start: 20140922
  5. ASMANEX [Concomitant]
     Active Substance: MOMETASONE FUROATE
     Dosage: 2 DF, DAILY (220 MCG/INH AEROSOL POWDER. TWO PUFFS DAILY)
     Dates: start: 20140922
  6. OCUVITE [Concomitant]
     Active Substance: VITAMINS
     Indication: ANTIOXIDANT THERAPY
     Dosage: 1 DF, 1X/DAY
     Route: 048
     Dates: start: 20150702
  7. ZOCOR [Concomitant]
     Active Substance: SIMVASTATIN
     Dosage: 10 MG, DAILY
     Dates: start: 20160330
  8. NAPROSYN [Concomitant]
     Active Substance: NAPROXEN
     Dosage: 500 MG, 1X/DAY
     Route: 048
     Dates: start: 20150702
  9. VENTOLIN HFA [Concomitant]
     Active Substance: ALBUTEROL SULFATE
     Dosage: 2 DF, AS NEEDED (CFC FREE 90 MCG/INH AEROSOL. TWO PUFFS AS NEEDED)
     Dates: start: 20140922
  10. LOMOTIL [Concomitant]
     Active Substance: ATROPINE SULFATE\DIPHENOXYLATE HYDROCHLORIDE
     Dosage: UNK, AS NEEDED (0.025 MG ? 2.5 MG TABLET. ONE TO TWO TABS FOUR TIMES DAILY AS NEEDED)
     Dates: start: 20140922
  11. CARAFATE [Concomitant]
     Active Substance: SUCRALFATE
     Dosage: 1 G, AS NEEDED
     Route: 048
     Dates: start: 20150702

REACTIONS (1)
  - Diarrhoea [Unknown]
